FAERS Safety Report 8542005-5 (Version None)
Quarter: 2012Q3

REPORT INFORMATION
  Report Type: 
  Country: None (occurrence: None)
  Receive Date: 20120726
  Receipt Date: 20110929
  Transmission Date: 20120928
  Serious: No
  Sender: FDA-Public Use
  Company Number: US-ASTRAZENECA-2011SE58503

PATIENT
  Age: 80 Year
  Sex: Female
  Weight: 68 kg

DRUGS (5)
  1. LISINOPRIL [Concomitant]
  2. DILTIAZEM [Concomitant]
  3. ZOLOFT [Concomitant]
  4. PROZAC [Concomitant]
  5. SEROQUEL [Suspect]
     Indication: SLEEP DISORDER
     Route: 048
     Dates: start: 20110401, end: 20110928

REACTIONS (6)
  - INSOMNIA [None]
  - DIARRHOEA [None]
  - OFF LABEL USE [None]
  - TREMOR [None]
  - DRUG DOSE OMISSION [None]
  - DEPRESSION [None]
